FAERS Safety Report 5948136-8 (Version None)
Quarter: 2008Q4

REPORT INFORMATION
  Report Type: 
  Country: None (occurrence: None)
  Receive Date: 20081111
  Receipt Date: 20081104
  Transmission Date: 20090506
  Serious: Yes (Other)
  Sender: FDA-Public Use
  Company Number: US-ROCHE-595259

PATIENT
  Age: 71 Year
  Sex: Female

DRUGS (4)
  1. BONIVA [Suspect]
     Indication: OSTEOPOROSIS
     Dosage: FORM: PRE-FILLED SYRINGE
     Route: 065
     Dates: start: 20070308
  2. METHOTREXATE [Concomitant]
     Route: 030
  3. MEDROL [Concomitant]
  4. FOLIC ACID [Concomitant]
     Route: 048

REACTIONS (1)
  - BRONCHOSPASM [None]
